FAERS Safety Report 8822287 (Version 1)
Quarter: 2012Q4

REPORT INFORMATION
  Report Type: 
  Country: CA (occurrence: CA)
  Receive Date: 20121003
  Receipt Date: 20121003
  Transmission Date: 20130627
  Serious: Yes (Other)
  Sender: FDA-Public Use
  Company Number: PHHY2011CA96681

PATIENT
  Age: 51 Year
  Sex: Female

DRUGS (2)
  1. GILENYA [Suspect]
     Indication: RELAPSING-REMITTING MULTIPLE SCLEROSIS
     Dosage: 0.5 mg, QD
     Route: 048
     Dates: start: 20110929, end: 20120803
  2. ZOPICLONE [Concomitant]

REACTIONS (12)
  - Palpitations [Recovered/Resolved]
  - Dyspnoea [Unknown]
  - Ear pain [Recovered/Resolved]
  - Sinus congestion [Unknown]
  - Oropharyngeal pain [Recovered/Resolved]
  - Nausea [Recovered/Resolved]
  - Rash [Recovered/Resolved]
  - Fatigue [Unknown]
  - Nasopharyngitis [Unknown]
  - Cough [Unknown]
  - Diarrhoea [Recovered/Resolved]
  - Alanine aminotransferase increased [Unknown]
